FAERS Safety Report 7338472-5 (Version None)
Quarter: 2011Q1

REPORT INFORMATION
  Report Type: 
  Country: None (occurrence: None)
  Receive Date: 20110308
  Receipt Date: 20110224
  Transmission Date: 20110831
  Serious: No
  Sender: FDA-Public Use
  Company Number: GB-ELI_LILLY_AND_COMPANY-GB201101004364

PATIENT
  Sex: Female
  Weight: 86 kg

DRUGS (4)
  1. BYETTA [Suspect]
     Indication: TYPE 2 DIABETES MELLITUS
     Dosage: 5 UG, UNK
     Route: 058
     Dates: start: 20070710, end: 20070919
  2. BYETTA [Suspect]
     Dosage: 10 UG, UNK
     Route: 058
     Dates: start: 20070919, end: 20071003
  3. INSULIN HYPURIN PORCINE MIX [Concomitant]
     Indication: TYPE 2 DIABETES MELLITUS
     Route: 058
     Dates: start: 20051115
  4. METFORMIN [Concomitant]
     Indication: TYPE 2 DIABETES MELLITUS
     Dosage: 850 MG, 3/D
     Dates: start: 20040507

REACTIONS (7)
  - FLANK PAIN [None]
  - ENZYME ABNORMALITY [None]
  - OFF LABEL USE [None]
  - ABDOMINAL PAIN UPPER [None]
  - IRRITABLE BOWEL SYNDROME [None]
  - BACK PAIN [None]
  - WEIGHT DECREASED [None]
